FAERS Safety Report 4357867-5 (Version None)
Quarter: 2004Q2

REPORT INFORMATION
  Report Type: 
  Country: None (occurrence: None)
  Receive Date: 20040510
  Receipt Date: 20040420
  Transmission Date: 20050107
  Serious: Yes (Hospitalization)
  Sender: FDA-Public Use
  Company Number: F03200400021

PATIENT
  Age: 51 Year
  Sex: Male
  Weight: 79.9 kg

DRUGS (9)
  1. ELOXATIN - OXALIPLATIN - SOLUTION - UNIT ONE DOSE : UNKNOWN [Suspect]
     Indication: NON-HODGKIN'S LYMPHOMA RECURRENT
     Dosage: 254 MY OTHER - INTRAVENOUS NOS
     Route: 042
     Dates: start: 20040210, end: 20040210
  2. GEMCITABINE - SOLUTION - UNIT DOSE : UNKNOWN [Suspect]
     Indication: NON-HODGKIN'S LYMPHOMA RECURRENT
     Dosage: INTRAVENOUS NOS
     Route: 042
     Dates: start: 20040210, end: 20040210
  3. DEXAMETHASONE - UNKNOWN - 40 MG [Suspect]
     Dosage: 40 MG OTHER - ORAL
     Route: 048
     Dates: start: 20040122, end: 20040211
  4. SULFONOMIDES/TRIMETHOPRIM [Concomitant]
  5. FLUCONAZOLE [Concomitant]
  6. ACYCLOVIR [Concomitant]
  7. OXYCODONE HCL [Concomitant]
  8. ROFECOXIB [Concomitant]
  9. ALPRAZOLAM [Concomitant]

REACTIONS (12)
  - BLOOD ALKALINE PHOSPHATASE INCREASED [None]
  - BLOOD BILIRUBIN INCREASED [None]
  - BLOOD CREATININE INCREASED [None]
  - BLOOD LACTATE DEHYDROGENASE INCREASED [None]
  - BONE MARROW DISORDER [None]
  - CHEST PAIN [None]
  - DISEASE PROGRESSION [None]
  - NEUTROPHIL COUNT INCREASED [None]
  - NIGHT SWEATS [None]
  - PNEUMONIA [None]
  - PYREXIA [None]
  - THROMBOCYTOPENIA [None]
